FAERS Safety Report 7380425-5 (Version None)
Quarter: 2011Q1

REPORT INFORMATION
  Report Type: 
  Country: None (occurrence: None)
  Receive Date: 20110318
  Receipt Date: 20110307
  Transmission Date: 20110831
  Serious: Yes (Death, Other)
  Sender: FDA-Public Use
  Company Number: PL-ACCORD-008406

PATIENT
  Age: 24 Year
  Sex: Female

DRUGS (8)
  1. PACLITAXEL [Suspect]
     Indication: OVARIAN EPITHELIAL CANCER
     Dosage: 175.00-MG/M2
  2. CYCLOPHOSPHAMIDE [Concomitant]
  3. CISPLATIN [Suspect]
     Indication: OVARIAN EPITHELIAL CANCER
     Dosage: 75.00-MG/M2
  4. DOXORUBICIN HCL [Concomitant]
  5. ONDANSETRON [Suspect]
     Indication: PREMEDICATION
     Dosage: 8 MG-
  6. DEXAMETHASONE (DEXAMETHASONE) [Suspect]
     Dosage: 20MG 2 TIMES PER DAY
  7. TOPOTECAN [Concomitant]
  8. CARBOPLATIN [Concomitant]

REACTIONS (8)
  - METASTASES TO LIVER [None]
  - CEREBRAL CYST [None]
  - PREMATURE LABOUR [None]
  - NEOPLASM MALIGNANT [None]
  - CAESAREAN SECTION [None]
  - METASTASES TO ABDOMINAL CAVITY [None]
  - DRUG EXPOSURE DURING PREGNANCY [None]
  - LYMPHADENOPATHY [None]
